FAERS Safety Report 7249567-9 (Version None)
Quarter: 2011Q1

REPORT INFORMATION
  Report Type: 
  Country: None (occurrence: None)
  Receive Date: 20110128
  Receipt Date: 20101228
  Transmission Date: 20110831
  Serious: Yes (Hospitalization)
  Sender: FDA-Public Use
  Company Number: FR-BAYER-2010-008700

PATIENT
  Sex: Male

DRUGS (5)
  1. BIPRETERAX [Concomitant]
     Indication: HYPERTENSION
     Dosage: UNK
     Route: 048
  2. FLAGYL [Suspect]
     Indication: COLITIS
  3. CIFLOX [Suspect]
     Indication: ENTEROCOLITIS INFECTIOUS
  4. CIFLOX [Suspect]
     Indication: ILEITIS
     Dosage: UNK
     Route: 048
     Dates: start: 20100713, end: 20100723
  5. FLAGYL [Suspect]
     Indication: ILEITIS
     Dosage: UNK
     Route: 048
     Dates: start: 20100713, end: 20100723

REACTIONS (1)
  - CYTOLYTIC HEPATITIS [None]
